FAERS Safety Report 6343613-2 (Version None)
Quarter: 2009Q3

REPORT INFORMATION
  Report Type: 
  Country: None (occurrence: None)
  Receive Date: 20090904
  Receipt Date: 20090904
  Transmission Date: 20100115
  Serious: Yes (Disabling)
  Sender: FDA-Public Use
  Company Number: None

PATIENT
  Age: 78 Year
  Sex: Male
  Weight: 91.173 kg

DRUGS (2)
  1. AZITHROMYCIN [Suspect]
     Indication: NASOPHARYNGITIS
     Dosage: 250MG 2 FIRST DAY 1 NEXT 4 DAYS
     Dates: start: 20090522, end: 20090526
  2. AZITHROMYCIN [Suspect]
     Indication: OROPHARYNGEAL PAIN
     Dosage: 250MG 2 FIRST DAY 1 NEXT 4 DAYS
     Dates: start: 20090522, end: 20090526

REACTIONS (3)
  - DEAFNESS UNILATERAL [None]
  - HYPOACUSIS [None]
  - SUDDEN HEARING LOSS [None]
